FAERS Safety Report 7757484-0 (Version None)
Quarter: 2011Q3

REPORT INFORMATION
  Report Type: 
  Country: None (occurrence: None)
  Receive Date: 20110916
  Receipt Date: 20110913
  Transmission Date: 20111222
  Serious: Yes (Death, Other)
  Sender: FDA-Public Use
  Company Number: US-B.I. PHARMACEUTICALS,INC./RIDGEFIELD-2011-BP-22146BP

PATIENT
  Age: 82 Year
  Sex: Male

DRUGS (3)
  1. PRADAXA [Suspect]
     Indication: ATRIAL FIBRILLATION
     Dosage: 300 MG
     Route: 048
     Dates: end: 20110830
  2. DRONEDARONE HCL [Concomitant]
     Indication: ATRIAL FIBRILLATION
  3. PRADAXA [Suspect]
     Dosage: 300 MG
     Route: 048
     Dates: start: 20110829, end: 20110830

REACTIONS (8)
  - NEPHROPATHY [None]
  - BLOOD URINE PRESENT [None]
  - PROTHROMBIN TIME PROLONGED [None]
  - RESPIRATORY FAILURE [None]
  - INTERNATIONAL NORMALISED RATIO [None]
  - THROMBIN TIME ABNORMAL [None]
  - CREATININE RENAL CLEARANCE [None]
  - HAEMOGLOBIN DECREASED [None]
